FAERS Safety Report 8494534-0 (Version None)
Quarter: 2012Q3

REPORT INFORMATION
  Report Type: 
  Country: None (occurrence: None)
  Receive Date: 20120709
  Receipt Date: 20120627
  Transmission Date: 20120928
  Serious: Yes (Other)
  Sender: FDA-Public Use
  Company Number: CA-JNJFOC-20120614197

PATIENT
  Sex: Female
  Weight: 60 kg

DRUGS (3)
  1. FUROSEMIDE [Concomitant]
     Route: 065
  2. REMICADE [Suspect]
     Indication: RHEUMATOID ARTHRITIS
     Route: 042
     Dates: start: 20050101
  3. CORTISONE ACETATE [Concomitant]
     Route: 050

REACTIONS (4)
  - OEDEMA PERIPHERAL [None]
  - JOINT SWELLING [None]
  - PETECHIAE [None]
  - RHEUMATOID ARTHRITIS [None]
